FAERS Safety Report 16856468 (Version 1)
Quarter: 2019Q3

REPORT INFORMATION
  Report Type: Spontaneous
  Country: US (occurrence: US)
  Receive Date: 20190926
  Receipt Date: 20190926
  Transmission Date: 20191005
  Serious: No
  Sender: FDA-Public Use
  Company Number: US-ALYVANT THERAPEUTICS, INC.-2019ALY00002

PATIENT
  Age: 80 Year
  Sex: Male

DRUGS (1)
  1. NOCTIVA [Suspect]
     Active Substance: DESMOPRESSIN ACETATE

REACTIONS (5)
  - Multi-organ disorder [Unknown]
  - Oedema [Unknown]
  - Inflammation [Unknown]
  - Swelling [Unknown]
  - Intervertebral disc protrusion [Unknown]
